FAERS Safety Report 7428795-3 (Version None)
Quarter: 2011Q2

REPORT INFORMATION
  Report Type: 
  Country: None (occurrence: None)
  Receive Date: 20110421
  Receipt Date: 20110415
  Transmission Date: 20111010
  Serious: Yes (Other)
  Sender: FDA-Public Use
  Company Number: US-BRISTOL-MYERS SQUIBB COMPANY-15226574

PATIENT
  Age: 64 Year
  Sex: Female

DRUGS (2)
  1. METFORMIN HCL [Suspect]
  2. ONGLYZA [Suspect]
     Dates: start: 20100101

REACTIONS (1)
  - ANAPHYLACTIC SHOCK [None]
